FAERS Safety Report 6838917-0 (Version None)
Quarter: 2010Q3

REPORT INFORMATION
  Report Type: 
  Country: None (occurrence: None)
  Receive Date: 20100713
  Receipt Date: 20070710
  Transmission Date: 20110219
  Serious: No
  Sender: FDA-Public Use
  Company Number: US-PFIZER INC-2007035718

PATIENT
  Sex: Female
  Weight: 63.636 kg

DRUGS (3)
  1. CHANTIX [Suspect]
     Indication: SMOKING CESSATION THERAPY
     Route: 048
     Dates: start: 20070428
  2. LEXAPRO [Concomitant]
  3. ORAL CONTRACEPTIVE NOS [Concomitant]

REACTIONS (3)
  - FATIGUE [None]
  - SEDATION [None]
  - SOMNOLENCE [None]
